FAERS Safety Report 9200652 (Version 1)
Quarter: 2013Q1

REPORT INFORMATION
  Report Type: Spontaneous
  Country: US (occurrence: US)
  Receive Date: 20130331
  Receipt Date: 20130331
  Transmission Date: 20140127
  Serious: No
  Sender: FDA-Public Use
  Company Number: US-ASTRAZENECA-2013SE13986

PATIENT
  Age: 61 Year
  Sex: Female
  Weight: 59 kg

DRUGS (3)
  1. SYMBICORT [Suspect]
     Indication: ASTHMA
     Dosage: 360 MCG TWO TIMES A DAY
     Route: 055
     Dates: start: 2010
  2. MOTRIN [Suspect]
     Route: 048
  3. MEDICATION FOR CHOLESTEROL [Concomitant]
     Indication: BLOOD CHOLESTEROL ABNORMAL

REACTIONS (4)
  - Dyspnoea [Not Recovered/Not Resolved]
  - Drug dose omission [Unknown]
  - Drug hypersensitivity [Unknown]
  - Rash [Unknown]
